FAERS Safety Report 9075667 (Version 1)
Quarter: 2013Q1

REPORT INFORMATION
  Report Type: Report from Study
  Country: US (occurrence: US)
  Receive Date: 20130129
  Receipt Date: 20130129
  Transmission Date: 20140127
  Serious: No
  Sender: FDA-Public Use
  Company Number: US-ABBOTT-12P-163-0936772-00

PATIENT
  Age: 54 Year
  Sex: Male

DRUGS (3)
  1. HUMIRA 40 MG/0.8 ML PEN [Suspect]
     Indication: CROHN^S DISEASE
     Dosage: DAY 1: INJECT 4 PENS
     Route: 058
     Dates: start: 20120511, end: 20120511
  2. HUMIRA 40 MG/0.8 ML PEN [Suspect]
     Dosage: DAY 15: 2 PENS
  3. HUMIRA 40 MG/0.8 ML PEN [Suspect]
     Dosage: 1 PEN EVERY OTHER WEEK THEREAFTER

REACTIONS (1)
  - Nausea [Recovered/Resolved]
